FAERS Safety Report 20862867 (Version 1)
Quarter: 2022Q2

REPORT INFORMATION
  Report Type: Spontaneous
  Country: JP (occurrence: JP)
  Receive Date: 20220523
  Receipt Date: 20220523
  Transmission Date: 20220721
  Serious: Yes (Other)
  Sender: FDA-Public Use
  Company Number: JP-BAYER-2022A071585

PATIENT
  Age: 81 Year
  Sex: Male

DRUGS (4)
  1. XOFIGO [Suspect]
     Active Substance: RADIUM RA-223 DICHLORIDE
     Indication: Metastases to bone
     Dosage: 6 TIMES
     Dates: start: 202110
  2. XOFIGO [Suspect]
     Active Substance: RADIUM RA-223 DICHLORIDE
     Indication: Hormone-refractory prostate cancer
  3. NUBEQA [Suspect]
     Active Substance: DAROLUTAMIDE
  4. BICALUTAMIDE [Concomitant]
     Active Substance: BICALUTAMIDE

REACTIONS (2)
  - Metastases to bone [None]
  - Prostatic specific antigen increased [None]
